FAERS Safety Report 6147940-3 (Version None)
Quarter: 2009Q2

REPORT INFORMATION
  Report Type: 
  Country: None (occurrence: None)
  Receive Date: 20090408
  Receipt Date: 20090402
  Transmission Date: 20091009
  Serious: Yes (Other)
  Sender: FDA-Public Use
  Company Number: PHHY2009BE05986

PATIENT
  Sex: Male

DRUGS (3)
  1. ZOMETA [Suspect]
     Dosage: 1 DF, UNK
  2. ZOMETA [Suspect]
     Dosage: 0.5 DF, UNK
  3. ZOMETA [Suspect]
     Dosage: 0.5 DF, UNK

REACTIONS (4)
  - JOINT STIFFNESS [None]
  - MUSCLE RIGIDITY [None]
  - PARKINSONIAN GAIT [None]
  - TREMOR [None]
